FAERS Safety Report 13842499 (Version 1)
Quarter: 2017Q3

REPORT INFORMATION
  Report Type: Spontaneous
  Country: GB (occurrence: GB)
  Receive Date: 20170808
  Receipt Date: 20170808
  Transmission Date: 20171127
  Serious: Yes (Death, Hospitalization)
  Sender: FDA-Public Use
  Company Number: GB-US WORLDMEDS, LLC-USW201705-000725

PATIENT
  Sex: Male

DRUGS (4)
  1. APOMORPHINE HYDROCHLORIDE [Suspect]
     Active Substance: APOMORPHINE HYDROCHLORIDE
     Indication: PRODUCT USED FOR UNKNOWN INDICATION
     Route: 058
     Dates: start: 20141104
  2. APOMORPHINE HYDROCHLORIDE [Suspect]
     Active Substance: APOMORPHINE HYDROCHLORIDE
     Route: 058
     Dates: start: 20141024
  3. MIRTAZAPINE. [Concomitant]
     Active Substance: MIRTAZAPINE
  4. RIVASTIGMINE. [Concomitant]
     Active Substance: RIVASTIGMINE

REACTIONS (7)
  - Dementia [Unknown]
  - Aggression [Recovering/Resolving]
  - Death [Fatal]
  - Psychotic disorder [Recovering/Resolving]
  - Hypersexuality [Recovering/Resolving]
  - Impaired self-care [Recovering/Resolving]
  - Confusional state [Unknown]
